FAERS Safety Report 23193114 (Version 3)
Quarter: 2024Q2

REPORT INFORMATION
  Report Type: Spontaneous
  Country: JP (occurrence: JP)
  Receive Date: 20231116
  Receipt Date: 20240410
  Transmission Date: 20240716
  Serious: Yes (Other)
  Sender: FDA-Public Use
  Company Number: JP-MSD-M2023-48406

PATIENT
  Sex: Female

DRUGS (3)
  1. KEYTRUDA [Suspect]
     Active Substance: PEMBROLIZUMAB
     Indication: Uterine cancer
     Dosage: 200 MILLIGRAM, Q3W
     Route: 041
  2. KEYTRUDA [Suspect]
     Active Substance: PEMBROLIZUMAB
     Dosage: 200 MILLIGRAM, Q3W
     Route: 041
  3. LENVATINIB MESYLATE [Suspect]
     Active Substance: LENVATINIB MESYLATE
     Indication: Uterine cancer
     Dosage: UNK
     Route: 048

REACTIONS (16)
  - Type 2 diabetes mellitus [Unknown]
  - Hypothyroidism [Unknown]
  - Fulminant type 1 diabetes mellitus [Unknown]
  - Paronychia [Unknown]
  - Anaemia [Unknown]
  - Platelet count decreased [Unknown]
  - Hypertension [Unknown]
  - Proteinuria [Unknown]
  - Malaise [Unknown]
  - Decreased appetite [Unknown]
  - Taste disorder [Unknown]
  - Stomatitis [Unknown]
  - Abdominal pain upper [Unknown]
  - Palmar-plantar erythrodysaesthesia syndrome [Unknown]
  - Dysphonia [Unknown]
  - Hyperglycaemia [Recovering/Resolving]
